FAERS Safety Report 9926833 (Version 1)
Quarter: 2014Q1

REPORT INFORMATION
  Report Type: Spontaneous
  Country: US (occurrence: US)
  Receive Date: 20140226
  Receipt Date: 20140226
  Transmission Date: 20141002
  Serious: No
  Sender: FDA-Public Use
  Company Number: US-AMGEN-USASP2013079968

PATIENT
  Age: 65 Year
  Sex: Male

DRUGS (6)
  1. ENBREL [Suspect]
     Indication: PRODUCT USED FOR UNKNOWN INDICATION
     Dosage: 50 MG, UNK
     Route: 058
  2. VITAMIN D                          /00107901/ [Concomitant]
     Dosage: 1000 UNIT, UNK
     Route: 065
  3. VITAMIN E                          /00110501/ [Concomitant]
     Dosage: 200 UNIT, UNK
     Route: 065
  4. AMLODIPINE [Concomitant]
     Dosage: 2.5 MG, UNK
     Route: 065
  5. LISINOPRIL [Concomitant]
     Dosage: 2.5 MG, UNK
     Route: 065
  6. LOSARTAN POTASSIUM [Concomitant]
     Dosage: 50 MG, UNK
     Route: 065

REACTIONS (3)
  - Oropharyngeal pain [Unknown]
  - Cough [Unknown]
  - Nasopharyngitis [Unknown]
